FAERS Safety Report 9204127 (Version 1)
Quarter: 2013Q2

REPORT INFORMATION
  Report Type: Spontaneous
  Country: AU (occurrence: AU)
  Receive Date: 20130402
  Receipt Date: 20130402
  Transmission Date: 20140414
  Serious: Yes (Death, Hospitalization)
  Sender: FDA-Public Use
  Company Number: AU-B.I. PHARMACEUTICALS,INC./RIDGEFIELD-2013-AU-00372AU

PATIENT
  Age: 75 Year
  Sex: 0

DRUGS (2)
  1. TRAJENTA [Suspect]
  2. WARFARIN [Suspect]

REACTIONS (3)
  - Haemorrhage [Fatal]
  - Malaise [Unknown]
  - International normalised ratio increased [Unknown]
